FAERS Safety Report 25272584 (Version 2)
Quarter: 2025Q2

REPORT INFORMATION
  Report Type: Report from Study
  Country: US (occurrence: US)
  Receive Date: 20250506
  Receipt Date: 20250512
  Transmission Date: 20250717
  Serious: No
  Sender: JOHNSON AND JOHNSON
  Company Number: US-JNJFOC-20250439896

PATIENT
  Age: 77 Year

DRUGS (1)
  1. MACITENTAN\TADALAFIL [Suspect]
     Active Substance: MACITENTAN\TADALAFIL
     Indication: Product used for unknown indication
     Route: 048

REACTIONS (3)
  - Fluid retention [Unknown]
  - Weight increased [Unknown]
  - Balance disorder [Unknown]

NARRATIVE: CASE EVENT DATE: 20250429
